FAERS Safety Report 7361461-1 (Version None)
Quarter: 2011Q1

REPORT INFORMATION
  Report Type: 
  Country: None (occurrence: None)
  Receive Date: 20110318
  Receipt Date: 20110309
  Transmission Date: 20110831
  Serious: Yes (Hospitalization, Other)
  Sender: FDA-Public Use
  Company Number: US-EISAI INC-E3810-04518-SPO-US

PATIENT
  Sex: Female
  Weight: 77 kg

DRUGS (1)
  1. ACIPHEX [Suspect]
     Route: 048

REACTIONS (17)
  - ABDOMINAL PAIN UPPER [None]
  - DYSSTASIA [None]
  - HODGKIN'S DISEASE [None]
  - LYMPHADENOPATHY [None]
  - BACK PAIN [None]
  - DYSPNOEA [None]
  - WEIGHT DECREASED [None]
  - GASTROOESOPHAGEAL REFLUX DISEASE [None]
  - THROAT IRRITATION [None]
  - NEOPLASM MALIGNANT [None]
  - PULMONARY EMBOLISM [None]
  - CHOLELITHIASIS [None]
  - ABDOMINAL DISTENSION [None]
  - MALAISE [None]
  - IMPAIRED GASTRIC EMPTYING [None]
  - RASH [None]
  - PLEURAL EFFUSION [None]
